FAERS Safety Report 5586931-8 (Version None)
Quarter: 2008Q1

REPORT INFORMATION
  Report Type: 
  Country: None (occurrence: None)
  Receive Date: 20080110
  Receipt Date: 20071231
  Transmission Date: 20080703
  Serious: Yes (Death, Other)
  Sender: FDA-Public Use
  Company Number: US-BRISTOL-MYERS SQUIBB COMPANY-14033385

PATIENT
  Age: 49 Year
  Sex: Male

DRUGS (9)
  1. PRINIVIL [Suspect]
     Route: 048
  2. PRINZIDE [Suspect]
     Route: 048
  3. FUROSEMIDE [Suspect]
  4. TRAZODONE HCL [Suspect]
  5. GABAPENTIN [Suspect]
  6. HYDROXYZINE HCL [Suspect]
  7. LAMOTRIGINE [Suspect]
  8. SILDENAFIL CITRATE [Suspect]
  9. VENLAFAXINE HCL [Suspect]

REACTIONS (2)
  - COMPLETED SUICIDE [None]
  - OVERDOSE [None]
